FAERS Safety Report 16009530 (Version 2)
Quarter: 2019Q1

REPORT INFORMATION
  Report Type: Report from Study
  Country: US (occurrence: US)
  Receive Date: 20190225
  Receipt Date: 20190325
  Transmission Date: 20190418
  Serious: Yes (Hospitalization)
  Sender: FDA-Public Use
  Company Number: US-BAXTER-2019BAX000970

PATIENT
  Sex: Male
  Weight: 98.5 kg

DRUGS (7)
  1. METHOTREXATE SODIUM. [Suspect]
     Active Substance: METHOTREXATE SODIUM
     Dosage: COURSE II REMISSION INDUCTION, TOTAL DOSE ADMINISTERED THIS COURSE: 100 MG, LAST DOSE ADMINISTERED P
     Route: 065
     Dates: start: 20181115, end: 20181115
  2. CYCLOPHOSPHAMIDE FOR INJECTION, USP [Suspect]
     Active Substance: CYCLOPHOSPHAMIDE
     Indication: B PRECURSOR TYPE ACUTE LEUKAEMIA
     Dosage: COURSE II REMISSION INDUCTION, LAST DOSE ADMINISTERED PRIOR TO SAE^S ON 12DEC2018
     Route: 065
     Dates: start: 20181107, end: 20181212
  3. CYTARABINE. [Suspect]
     Active Substance: CYTARABINE
     Indication: B PRECURSOR TYPE ACUTE LEUKAEMIA
     Dosage: COURSE II REMISSION INDUCTION, LAST DOSE ADMINISTERED PRIOR TO SAE^S ON 22DEC2018
     Route: 065
     Dates: start: 20181107, end: 20181222
  4. VINCRISTINE SULFATE. [Suspect]
     Active Substance: VINCRISTINE SULFATE
     Indication: B PRECURSOR TYPE ACUTE LEUKAEMIA
     Dosage: COURSE II REMISSION INDUCTION, LAST ADMINISTERED DATE: 16JAN2019
     Route: 065
     Dates: start: 20181121, end: 20190116
  5. ONCASPAR [Suspect]
     Active Substance: PEGASPARGASE
     Indication: B PRECURSOR TYPE ACUTE LEUKAEMIA
     Dosage: COURSE II REMISSION INDUCTION, TOTAL DOSE ADMINISTERED THIS COURSE: 7500 UNIT NOT REPORTED, LAST ADM
     Route: 065
     Dates: start: 20181121, end: 20190109
  6. LEVOPHED [Concomitant]
     Active Substance: NOREPINEPHRINE BITARTRATE
     Indication: HYPOTENSION
     Dosage: LOW-DOSE
     Route: 065
     Dates: start: 20181128
  7. METHOTREXATE SODIUM. [Suspect]
     Active Substance: METHOTREXATE SODIUM
     Indication: B PRECURSOR TYPE ACUTE LEUKAEMIA
     Dosage: COURSE II REMISSION INDUCTION, TOTAL DOSE ADMINISTERED THIS COURSE: 100 MG
     Route: 065
     Dates: start: 20181107

REACTIONS (5)
  - Back pain [Unknown]
  - Sepsis [Recovered/Resolved]
  - Febrile neutropenia [Not Recovered/Not Resolved]
  - Bacteraemia [Unknown]
  - Transaminases increased [Unknown]

NARRATIVE: CASE EVENT DATE: 20181128
